FAERS Safety Report 6411536-6 (Version None)
Quarter: 2009Q4

REPORT INFORMATION
  Report Type: 
  Country: None (occurrence: None)
  Receive Date: 20091023
  Receipt Date: 20091014
  Transmission Date: 20100525
  Serious: Yes (Hospitalization)
  Sender: FDA-Public Use
  Company Number: US-JNJFOC-20091006767

PATIENT
  Sex: Female
  Weight: 90.72 kg

DRUGS (2)
  1. HALDOL [Suspect]
     Indication: MENTAL DISORDER
     Route: 030
     Dates: start: 20050101, end: 20090101
  2. RISPERDAL CONSTA [Concomitant]
     Indication: MENTAL DISORDER
     Route: 030
     Dates: start: 19990101, end: 20050101

REACTIONS (4)
  - CARDIAC FAILURE CONGESTIVE [None]
  - HYPOAESTHESIA [None]
  - MALAISE [None]
  - MENTAL DISORDER [None]
